FAERS Safety Report 16427800 (Version 4)
Quarter: 2023Q1

REPORT INFORMATION
  Report Type: Report from Study
  Country: US (occurrence: US)
  Receive Date: 20190613
  Receipt Date: 20230322
  Transmission Date: 20230417
  Serious: Yes (Death, Other)
  Sender: FDA-Public Use
  Company Number: US-SHIRE-US201918589

PATIENT
  Age: 80 Year
  Sex: Female

DRUGS (5)
  1. LANADELUMAB [Suspect]
     Active Substance: LANADELUMAB
     Indication: Hereditary angioedema
     Dosage: 300 MILLILITER, Q2WEEKS
     Route: 065
     Dates: start: 20190326
  2. LANADELUMAB [Suspect]
     Active Substance: LANADELUMAB
     Dosage: 300 MILLIGRAM
     Route: 058
     Dates: start: 20190405, end: 20190531
  3. LANADELUMAB [Suspect]
     Active Substance: LANADELUMAB
     Dosage: 300 MILLIGRAM
     Route: 058
     Dates: start: 20230317
  4. FIRAZYR [Suspect]
     Active Substance: ICATIBANT ACETATE
     Indication: Hereditary angioedema
     Dosage: UNK UNK, Q2WEEKS
     Route: 058
     Dates: start: 20230317
  5. FIRAZYR [Suspect]
     Active Substance: ICATIBANT ACETATE
     Indication: Hereditary angioedema
     Dosage: UNK UNK, Q2WEEKS
     Route: 058
     Dates: start: 20230317

REACTIONS (3)
  - Death [Fatal]
  - Respiratory tract infection [Recovered/Resolved with Sequelae]
  - Product dose omission issue [Not Recovered/Not Resolved]

NARRATIVE: CASE EVENT DATE: 20190419
